FAERS Safety Report 5078774-9 (Version None)
Quarter: 2006Q3

REPORT INFORMATION
  Report Type: 
  Country: None (occurrence: None)
  Receive Date: 20060809
  Receipt Date: 20060801
  Transmission Date: 20061208
  Serious: Yes (Hospitalization, Other)
  Sender: FDA-Public Use
  Company Number: 200614910BWH

PATIENT
  Age: 87 Year
  Sex: Male

DRUGS (1)
  1. SORAFENIB [Suspect]
     Indication: RENAL CELL CARCINOMA STAGE UNSPECIFIED
     Dosage: 400 MG, BID, ORAL
     Route: 048
     Dates: start: 20051101, end: 20060630

REACTIONS (4)
  - ANAEMIA [None]
  - ANOREXIA [None]
  - MALAISE [None]
  - SMALL INTESTINAL HAEMORRHAGE [None]
